FAERS Safety Report 5873693-X (Version None)
Quarter: 2008Q3

REPORT INFORMATION
  Report Type: 
  Country: None (occurrence: None)
  Receive Date: 20080908
  Receipt Date: 20080829
  Transmission Date: 20090109
  Serious: Yes (Hospitalization)
  Sender: FDA-Public Use
  Company Number: B0535208A

PATIENT
  Age: 56 Year
  Sex: Female

DRUGS (8)
  1. TOPOTECAN [Suspect]
     Indication: OVARIAN CANCER
     Dosage: 5.1MG PER DAY
     Route: 042
     Dates: start: 20080702, end: 20080823
  2. LAPATINIB [Suspect]
     Indication: OVARIAN CANCER
     Dosage: 1000MG PER DAY
     Route: 048
     Dates: start: 20080702
  3. TIORFAN [Concomitant]
     Indication: DIARRHOEA
     Route: 048
     Dates: start: 20080707, end: 20080716
  4. SMECTA [Concomitant]
     Indication: DIARRHOEA
     Route: 048
     Dates: start: 20080707, end: 20080716
  5. IMODIUM [Concomitant]
     Indication: DIARRHOEA
     Route: 048
     Dates: start: 20080707, end: 20080716
  6. NEORECORMON [Concomitant]
     Indication: ANAEMIA
     Route: 058
     Dates: start: 20080716
  7. PREVISCAN [Concomitant]
     Indication: PROPHYLAXIS
     Route: 048
     Dates: start: 20080709, end: 20080809
  8. FUMAFER [Concomitant]
     Route: 048
     Dates: start: 20080716, end: 20080816

REACTIONS (1)
  - COUGH [None]
